FAERS Safety Report 17245501 (Version 2)
Quarter: 2020Q1

REPORT INFORMATION
  Report Type: Report from Study
  Country: US (occurrence: US)
  Receive Date: 20200108
  Receipt Date: 20200120
  Transmission Date: 20200409
  Serious: Yes (Hospitalization, Other)
  Sender: FDA-Public Use
  Company Number: US-ASPEN-GLO2019US013885

PATIENT
  Age: 3 Year
  Sex: Male
  Weight: 19.2 kg

DRUGS (14)
  1. TIOGUANINE [Suspect]
     Active Substance: THIOGUANINE ANHYDROUS
     Indication: B PRECURSOR TYPE ACUTE LEUKAEMIA
     Dosage: 40 MG, QD
     Route: 048
     Dates: start: 20191122, end: 20191205
  2. VINCRISTINE [Suspect]
     Active Substance: VINCRISTINE
     Indication: B PRECURSOR TYPE ACUTE LEUKAEMIA
     Dosage: 1.1 MG, UNK
     Route: 042
     Dates: start: 20191108
  3. DEXAMETHASONE. [Suspect]
     Active Substance: DEXAMETHASONE
     Dosage: 7.5 ML, QD
     Route: 048
     Dates: start: 20191025
  4. PEGASPARGASE [Suspect]
     Active Substance: PEGASPARGASE
     Indication: B PRECURSOR TYPE ACUTE LEUKAEMIA
     Dosage: 1800 IU, ONCE
     Route: 042
     Dates: start: 20190606
  5. DOXORUBICIN [Suspect]
     Active Substance: DOXORUBICIN
     Indication: B PRECURSOR TYPE ACUTE LEUKAEMIA
     Dosage: 19 MG, UNK
     Route: 042
     Dates: start: 20191025
  6. METHOTREXATE. [Suspect]
     Active Substance: METHOTREXATE
     Indication: B PRECURSOR TYPE ACUTE LEUKAEMIA
     Dosage: 12 MG, UNK
     Route: 037
     Dates: start: 20190523
  7. CYCLOPHOSPHAMIDE. [Suspect]
     Active Substance: CYCLOPHOSPHAMIDE
     Indication: B PRECURSOR TYPE ACUTE LEUKAEMIA
     Dosage: 730 MG, UNK
     Route: 042
     Dates: start: 20190523
  8. MERCAPTOPURINE. [Suspect]
     Active Substance: MERCAPTOPURINE
     Indication: B PRECURSOR TYPE ACUTE LEUKAEMIA
     Dosage: 300 MG, 1 DOSE WEEKLY
     Route: 048
     Dates: start: 20190523
  9. INCB018424 [Suspect]
     Active Substance: RUXOLITINIB
     Dosage: 35 MG, BID
     Route: 048
     Dates: start: 20191206
  10. TIOGUANINE [Suspect]
     Active Substance: THIOGUANINE ANHYDROUS
     Dosage: 40 MG, QD
     Route: 048
     Dates: start: 20191206
  11. VINCRISTINE [Suspect]
     Active Substance: VINCRISTINE
     Dosage: 1.1 MG, QD
     Route: 042
     Dates: start: 20190606
  12. CYTARABINE. [Suspect]
     Active Substance: CYTARABINE
     Indication: B PRECURSOR TYPE ACUTE LEUKAEMIA
     Dosage: 56 MG, UNK
     Route: 042
     Dates: start: 20190523
  13. INCB018424 [Suspect]
     Active Substance: RUXOLITINIB
     Indication: B PRECURSOR TYPE ACUTE LEUKAEMIA
     Dosage: 35 MG, BID
     Route: 048
     Dates: start: 20190523, end: 20191205
  14. DEXAMETHASONE. [Suspect]
     Active Substance: DEXAMETHASONE
     Indication: B PRECURSOR TYPE ACUTE LEUKAEMIA
     Dosage: 5 ML, UNK
     Route: 048
     Dates: start: 20191108

REACTIONS (1)
  - Febrile neutropenia [Recovering/Resolving]

NARRATIVE: CASE EVENT DATE: 20191205
